FAERS Safety Report 25615563 (Version 1)
Quarter: 2025Q3

REPORT INFORMATION
  Report Type: Spontaneous
  Country: US (occurrence: US)
  Receive Date: 20250729
  Receipt Date: 20250729
  Transmission Date: 20251021
  Serious: Yes (Other)
  Sender: AUROBINDO
  Company Number: US-AUROBINDO-AUR-APL-2025-035253

PATIENT
  Age: 35 Year
  Sex: Male
  Weight: 81.64 kg

DRUGS (3)
  1. BUPIVACAINE HYDROCHLORIDE [Suspect]
     Active Substance: BUPIVACAINE HYDROCHLORIDE
     Indication: Pain management
     Route: 065
     Dates: start: 20250217
  2. BUPIVACAINE HYDROCHLORIDE [Suspect]
     Active Substance: BUPIVACAINE HYDROCHLORIDE
     Indication: Anaesthesia
  3. METHOCARBAMOL [Concomitant]
     Active Substance: METHOCARBAMOL
     Indication: Muscle relaxant therapy
     Route: 065

REACTIONS (9)
  - Cerebrovascular accident [Unknown]
  - Myocardial infarction [Unknown]
  - Memory impairment [Unknown]
  - Anxiety [Unknown]
  - Hyperaesthesia [Unknown]
  - Inflammation [Unknown]
  - Condition aggravated [Unknown]
  - Impaired quality of life [Unknown]
  - Neuralgia [Unknown]
